FAERS Safety Report 24953913 (Version 1)
Quarter: 2025Q1

REPORT INFORMATION
  Report Type: Report from Study
  Country: ZA (occurrence: ZA)
  Receive Date: 20250211
  Receipt Date: 20250211
  Transmission Date: 20250408
  Serious: Yes (Other)
  Sender: ALEXION PHARMACEUTICALS
  Company Number: ZA-AstraZeneca-CH-00799649A

PATIENT
  Age: 64 Year

DRUGS (9)
  1. DAPAGLIFLOZIN [Suspect]
     Active Substance: DAPAGLIFLOZIN
     Indication: Diabetes mellitus
  2. ANASTROZOLE [Suspect]
     Active Substance: ANASTROZOLE
     Indication: Prophylaxis
  3. ALLOPURINOL [Suspect]
     Active Substance: ALLOPURINOL
     Indication: Prophylaxis
  4. IRBESARTAN [Suspect]
     Active Substance: IRBESARTAN
     Indication: Hypertension
  5. AMLODIPINE\INDAPAMIDE [Suspect]
     Active Substance: AMLODIPINE\INDAPAMIDE
     Indication: Angina pectoris
  6. CARVEDILOL [Suspect]
     Active Substance: CARVEDILOL
     Indication: Hypertension
  7. SIMVASTATIN [Suspect]
     Active Substance: SIMVASTATIN
     Indication: Blood cholesterol
  8. METFORMIN HYDROCHLORIDE [Suspect]
     Active Substance: METFORMIN HYDROCHLORIDE
     Indication: Diabetes mellitus
  9. TORSEMIDE [Suspect]
     Active Substance: TORSEMIDE
     Indication: Hypertension

REACTIONS (1)
  - Neoplasm malignant [Unknown]
